FAERS Safety Report 19145643 (Version 1)
Quarter: 2021Q2

REPORT INFORMATION
  Report Type: Spontaneous
  Country: US (occurrence: US)
  Receive Date: 20210416
  Receipt Date: 20210416
  Transmission Date: 20210717
  Serious: Yes (Other)
  Sender: FDA-Public Use
  Company Number: None

PATIENT
  Age: 36 Year
  Sex: Female
  Weight: 48.15 kg

DRUGS (5)
  1. CEFEPIME [Suspect]
     Active Substance: CEFEPIME HYDROCHLORIDE
     Indication: SEPSIS
     Route: 041
     Dates: start: 20210408, end: 20210411
  2. FAMOTIDINE. [Concomitant]
     Active Substance: FAMOTIDINE
  3. VANCOMYCIN [Concomitant]
     Active Substance: VANCOMYCIN
  4. FLUCONAZOLE. [Concomitant]
     Active Substance: FLUCONAZOLE
  5. ATOVAQUONE. [Concomitant]
     Active Substance: ATOVAQUONE

REACTIONS (5)
  - Mutism [None]
  - Neurotoxicity [None]
  - Encephalopathy [None]
  - Myoclonus [None]
  - Nonspecific reaction [None]

NARRATIVE: CASE EVENT DATE: 20210410
